FAERS Safety Report 14229794 (Version 1)
Quarter: 2017Q4

REPORT INFORMATION
  Report Type: Spontaneous
  Country: US (occurrence: None)
  Receive Date: 20171128
  Receipt Date: 20171128
  Transmission Date: 20180321
  Serious: Yes (Death, Hospitalization)
  Sender: FDA-Public Use
  Company Number: None

PATIENT
  Age: 66 Year
  Sex: Female
  Weight: 154.22 kg

DRUGS (1)
  1. BYDUREON [Suspect]
     Active Substance: EXENATIDE
     Indication: DIABETES MELLITUS MANAGEMENT
     Dosage: 2 MG SUBCUTANEOUS ONLY ONCE WEEKLY INJECTION INTO STOMACH
     Route: 058
     Dates: start: 2015, end: 201708

REACTIONS (6)
  - Hypophagia [None]
  - Fatigue [None]
  - Gait disturbance [None]
  - General physical health deterioration [None]
  - Neoplasm malignant [None]
  - Vomiting [None]
